FAERS Safety Report 18619183 (Version 4)
Quarter: 2022Q4

REPORT INFORMATION
  Report Type: Spontaneous
  Country: FR (occurrence: FR)
  Receive Date: 20201215
  Receipt Date: 20221019
  Transmission Date: 20230112
  Serious: Yes (Death, Other)
  Sender: FDA-Public Use
  Company Number: FR-PFIZER INC-2020491282

PATIENT
  Age: 30 Year
  Sex: Male

DRUGS (4)
  1. LYRICA [Suspect]
     Active Substance: PREGABALIN
     Indication: Substance use
     Dosage: UNK
     Route: 065
  2. PAROXETINE [Suspect]
     Active Substance: PAROXETINE
     Indication: Substance use
     Dosage: UNK
     Route: 065
  3. BROMAZEPAM [Suspect]
     Active Substance: BROMAZEPAM
     Indication: Substance use
     Dosage: UNK
     Route: 065
  4. SUBUTEX [Suspect]
     Active Substance: BUPRENORPHINE HYDROCHLORIDE
     Indication: Substance use
     Dosage: UNK
     Route: 065

REACTIONS (7)
  - Respiratory depression [Fatal]
  - Substance abuse [Fatal]
  - Asphyxia [Fatal]
  - Toxicity to various agents [Fatal]
  - Intentional overdose [Fatal]
  - Visceral congestion [Fatal]
  - Drug abuse [Fatal]
